FAERS Safety Report 4555461-4 (Version None)
Quarter: 2004Q4

REPORT INFORMATION
  Report Type: 
  Country: None (occurrence: None)
  Receive Date: 20041217
  Receipt Date: 20040316
  Transmission Date: 20050328
  Serious: Yes (Life-Threatening, Hospitalization)
  Sender: FDA-Public Use
  Company Number: PHEH2004US02014

PATIENT
  Age: 61 Year
  Sex: Male

DRUGS (5)
  1. SANDOSTATIN [Suspect]
     Indication: DIARRHOEA
     Dosage: 100 UG, QD, SUBCUTANEOUS
     Route: 058
     Dates: start: 20040129
  2. ZOLOFT [Concomitant]
  3. MARINOL [Concomitant]
  4. LOMOTIL (DIPHENOXYLATE HYDROCHLORIDE) [Concomitant]
  5. PAREGORIC (OPIUM) [Concomitant]

REACTIONS (5)
  - GRAND MAL CONVULSION [None]
  - LOSS OF CONSCIOUSNESS [None]
  - MUSCLE CRAMP [None]
  - RASH [None]
  - VOMITING [None]
